FAERS Safety Report 7322037-5 (Version None)
Quarter: 2011Q1

REPORT INFORMATION
  Report Type: 
  Country: None (occurrence: None)
  Receive Date: 20110228
  Receipt Date: 20110214
  Transmission Date: 20110831
  Serious: Yes (Other)
  Sender: FDA-Public Use
  Company Number: US-CELGENEUS-163-21880-11012115

PATIENT
  Sex: Male

DRUGS (15)
  1. VITAMIN B-12 [Concomitant]
     Route: 065
  2. LISINOPRIL [Concomitant]
     Route: 065
  3. OMEPRAZOLE [Concomitant]
     Route: 065
  4. REVLIMID [Suspect]
     Indication: MULTIPLE MYELOMA
     Route: 048
     Dates: start: 20081101
  5. VITAMIN D [Concomitant]
     Route: 065
  6. POTASSIUM [Concomitant]
     Route: 065
  7. LEVOTHYROXINE SODIUM [Concomitant]
     Route: 065
  8. DEXAMETHASONE [Concomitant]
     Route: 065
  9. TOPROL-XL [Concomitant]
     Route: 065
  10. LYRICA [Concomitant]
     Route: 065
  11. AREDIA [Concomitant]
     Route: 065
  12. IMODIUM MULTI-SYMPTOM RELIEF [Concomitant]
     Route: 065
     Dates: start: 20100211
  13. AMLODIPINE [Concomitant]
     Route: 065
  14. ASPIRIN [Concomitant]
     Route: 065
  15. SIMVASTATIN [Concomitant]
     Route: 065

REACTIONS (4)
  - BRONCHITIS [None]
  - ORAL HERPES [None]
  - CORONARY ARTERY DISEASE [None]
  - RED BLOOD CELL COUNT DECREASED [None]
